FAERS Safety Report 9618776 (Version 3)
Quarter: 2013Q4

REPORT INFORMATION
  Report Type: Spontaneous
  Country: DE (occurrence: DE)
  Receive Date: 20131014
  Receipt Date: 20131219
  Transmission Date: 20140711
  Serious: Yes (Hospitalization, Other)
  Sender: FDA-Public Use
  Company Number: PHHY2013DE114622

PATIENT
  Age: 71 Year
  Sex: Male

DRUGS (7)
  1. EXFORGE [Suspect]
     Indication: HYPERTENSION
     Dosage: 1 DF (160MG VALS/ 10 MG AMLO), QD
     Route: 048
     Dates: start: 2008, end: 201306
  2. RAMIPRIL [Suspect]
     Dosage: UNK UKN, UNK
  3. HYDROCHLOROTHIAZIDE [Suspect]
     Dosage: UNK UKN, UNK
  4. AMLODIPINE [Concomitant]
     Dosage: 1 DF (5 MG), QD
     Route: 048
  5. LOSARTAN [Concomitant]
     Dosage: 1 DF (25 MG), QD
     Route: 048
  6. CALCIUM ^SANDOZ^ [Concomitant]
     Indication: BLOOD CALCIUM ABNORMAL
     Dosage: 1 DF (500 MG), QD
     Route: 048
     Dates: start: 201311
  7. VITAMIN D [Concomitant]
     Indication: BLOOD CALCIUM ABNORMAL
     Dosage: 1000 I.E., UNK
     Route: 048
     Dates: start: 201311

REACTIONS (11)
  - Subdural haematoma [Recovered/Resolved with Sequelae]
  - Haemorrhage [Unknown]
  - Headache [Unknown]
  - Haematoma [Unknown]
  - Hypoaesthesia [Unknown]
  - Paraesthesia [Unknown]
  - Blood calcium decreased [Unknown]
  - Blood thyroid stimulating hormone increased [Unknown]
  - Vascular fragility [Unknown]
  - Skin disorder [Recovered/Resolved]
  - Blood pressure increased [Unknown]
